FAERS Safety Report 6923379-5 (Version None)
Quarter: 2010Q3

REPORT INFORMATION
  Report Type: 
  Country: None (occurrence: None)
  Receive Date: 20100813
  Receipt Date: 20100810
  Transmission Date: 20110219
  Serious: Yes (Life-Threatening, Hospitalization, Disabling)
  Sender: FDA-Public Use
  Company Number: US-MERCK-1007USA03781

PATIENT
  Age: 64 Year
  Sex: Female

DRUGS (7)
  1. MAXALT [Suspect]
     Indication: MIGRAINE
     Route: 048
     Dates: start: 20080701
  2. ASPIRIN [Concomitant]
     Route: 065
  3. LYRICA [Concomitant]
     Route: 065
  4. CYTOMEL [Concomitant]
     Route: 065
  5. ACTOS [Concomitant]
     Route: 065
  6. LEVOTHYROXINE SODIUM [Concomitant]
     Route: 065
  7. CEPHALEXIN [Concomitant]
     Route: 065

REACTIONS (5)
  - ADRENAL INSUFFICIENCY [None]
  - COELIAC DISEASE [None]
  - IRON DEFICIENCY ANAEMIA [None]
  - RED BLOOD CELL COUNT DECREASED [None]
  - SYNCOPE [None]
